FAERS Safety Report 13962748 (Version 1)
Quarter: 2017Q3

REPORT INFORMATION
  Report Type: Spontaneous
  Country: US (occurrence: US)
  Receive Date: 20170913
  Receipt Date: 20170913
  Transmission Date: 20171128
  Serious: Yes (Other)
  Sender: FDA-Public Use
  Company Number: US-JNJCP-30000405320

PATIENT
  Sex: Female

DRUGS (1)
  1. ROC RETINOL CORREXION DEEP WRINKLE DAILY MOISTURIZER SPF30 [Suspect]
     Active Substance: AVOBENZONE\HOMOSALATE\OCTOCRYLENE\OXYBENZONE
     Route: 061

REACTIONS (1)
  - Malignant melanoma [Not Recovered/Not Resolved]
